FAERS Safety Report 9431855 (Version 1)
Quarter: 2013Q3

REPORT INFORMATION
  Report Type: Spontaneous
  Country: AR (occurrence: AR)
  Receive Date: 20130731
  Receipt Date: 20130731
  Transmission Date: 20140515
  Serious: Yes (Hospitalization)
  Sender: FDA-Public Use
  Company Number: PHHY2013AR080590

PATIENT
  Sex: Male
  Weight: 1.6 kg

DRUGS (1)
  1. DIOVAN [Suspect]
     Dosage: METERNAL DOSE 80 MG, DAILY
     Route: 064

REACTIONS (3)
  - Premature baby [Recovered/Resolved]
  - Low birth weight baby [Recovered/Resolved]
  - Foetal exposure during pregnancy [Unknown]
